FAERS Safety Report 12926427 (Version 2)
Quarter: 2016Q4

REPORT INFORMATION
  Report Type: Report from Study
  Country: US (occurrence: US)
  Receive Date: 20161109
  Receipt Date: 20161121
  Transmission Date: 20170207
  Serious: Yes (Other)
  Sender: FDA-Public Use
  Company Number: US-ACTELION-A-US2016-145278

PATIENT
  Age: 83 Year
  Sex: Female

DRUGS (12)
  1. FLONASE [Concomitant]
     Active Substance: FLUTICASONE PROPIONATE
  2. NIFEDIPINE. [Concomitant]
     Active Substance: NIFEDIPINE
  3. CALCIUM + VITAMIN D [Concomitant]
     Active Substance: CALCIUM\VITAMIN D
  4. PRAVASTATIN. [Concomitant]
     Active Substance: PRAVASTATIN
  5. BUMEX [Concomitant]
     Active Substance: BUMETANIDE
     Dosage: 0.5 MG, UNK
  6. MULTIVITAMIN [Concomitant]
     Active Substance: VITAMINS
  7. PROLIA [Concomitant]
     Active Substance: DENOSUMAB
     Dosage: 60 MG, UNK
     Route: 058
  8. TRIMETHOPRIM. [Concomitant]
     Active Substance: TRIMETHOPRIM
  9. TYVASO [Concomitant]
     Active Substance: TREPROSTINIL
     Dosage: 6 PUFF, QID
  10. TRACLEER [Suspect]
     Active Substance: BOSENTAN
     Indication: PULMONARY ARTERIAL HYPERTENSION
     Dosage: 125 MG, BID
     Route: 048
     Dates: start: 2008
  11. CARVEDILOL. [Concomitant]
     Active Substance: CARVEDILOL
  12. NEXIUM [Concomitant]
     Active Substance: ESOMEPRAZOLE MAGNESIUM

REACTIONS (8)
  - Urinary tract infection [Unknown]
  - Pyrexia [Unknown]
  - Productive cough [Unknown]
  - Dyspnoea [Unknown]
  - Deafness [Unknown]
  - Fatigue [Unknown]
  - Chest pain [Unknown]
  - Bronchitis [Unknown]
